FAERS Safety Report 14448776 (Version 1)
Quarter: 2018Q1

REPORT INFORMATION
  Report Type: Spontaneous
  Country: DE (occurrence: DE)
  Receive Date: 20180126
  Receipt Date: 20180126
  Transmission Date: 20180509
  Serious: Yes (Hospitalization)
  Sender: FDA-Public Use
  Company Number: DE-ELI_LILLY_AND_COMPANY-DE201801007993

PATIENT
  Age: 75 Year
  Sex: Female

DRUGS (1)
  1. DULOXETINE HYDROCHLORIDE. [Suspect]
     Active Substance: DULOXETINE HYDROCHLORIDE
     Indication: STRESS URINARY INCONTINENCE
     Dosage: 40 MG, UNKNOWN
     Route: 048

REACTIONS (2)
  - Loss of consciousness [Unknown]
  - Hyponatraemia [Unknown]
